FAERS Safety Report 7207611-9 (Version None)
Quarter: 2011Q1

REPORT INFORMATION
  Report Type: 
  Country: None (occurrence: None)
  Receive Date: 20110103
  Receipt Date: 20101228
  Transmission Date: 20110831
  Serious: Yes (Death, Other)
  Sender: FDA-Public Use
  Company Number: NL-ROXANE LABORATORIES, INC.-2010-RO-01727RO

PATIENT
  Age: 77 Year
  Sex: Female
  Weight: 62 kg

DRUGS (7)
  1. METHOTREXATE [Suspect]
     Indication: PSORIASIS
  2. ETANERCEPT [Suspect]
     Route: 058
  3. METHOTREXATE [Suspect]
     Indication: RHEUMATOID ARTHRITIS
     Route: 058
  4. PANTOPRAZOLE [Suspect]
     Dosage: 20 MG
  5. FOLIC ACID [Suspect]
  6. LEFLUNOMIDE [Suspect]
     Dosage: 10 MG
  7. NAPROXEN [Suspect]
     Dosage: 1000 MG

REACTIONS (3)
  - OSTEOPENIA [None]
  - TIBIA FRACTURE [None]
  - DEATH [None]
